FAERS Safety Report 8630532 (Version 4)
Quarter: 2014Q1

REPORT INFORMATION
  Report Type: Report from Study
  Country: US (occurrence: US)
  Receive Date: 20120622
  Receipt Date: 20140113
  Transmission Date: 20141002
  Serious: Yes (Death, Other)
  Sender: FDA-Public Use
  Company Number: US-ROCHE-1080722

PATIENT
  Age: 53 Year
  Sex: Female
  Weight: 99.43 kg

DRUGS (5)
  1. TOCILIZUMAB [Suspect]
     Indication: RHEUMATOID ARTHRITIS
     Route: 042
     Dates: start: 20111012, end: 20111012
  2. TOCILIZUMAB [Suspect]
     Route: 042
     Dates: start: 20120107, end: 20120107
  3. TOCILIZUMAB [Suspect]
     Route: 042
     Dates: start: 20111210, end: 20111210
  4. ADALIMUMAB [Suspect]
     Indication: PSORIATIC ARTHROPATHY
     Route: 058
     Dates: start: 2011, end: 201201
  5. METHOTREXATE [Concomitant]
     Indication: RHEUMATOID ARTHRITIS
     Route: 048
     Dates: start: 20111210, end: 20111226

REACTIONS (6)
  - Pulmonary oedema [Fatal]
  - Cardiopulmonary failure [Fatal]
  - Cardiac failure congestive [Fatal]
  - Sepsis [Fatal]
  - Immune system disorder [Fatal]
  - Endocarditis [Fatal]
